FAERS Safety Report 7399479-5 (Version None)
Quarter: 2011Q1

REPORT INFORMATION
  Report Type: 
  Country: None (occurrence: None)
  Receive Date: 20110330
  Receipt Date: 20110322
  Transmission Date: 20110831
  Serious: Yes (Hospitalization)
  Sender: FDA-Public Use
  Company Number: 2011SP013052

PATIENT
  Age: 68 Year
  Sex: Female

DRUGS (12)
  1. MAGLAX [Concomitant]
  2. REMERON [Suspect]
     Indication: BIPOLAR I DISORDER
     Dosage: 15 MG;QD;PO, 30 MG;QD;PO
     Route: 048
     Dates: start: 20101126, end: 20101208
  3. REMERON [Suspect]
     Indication: BIPOLAR I DISORDER
     Dosage: 15 MG;QD;PO, 30 MG;QD;PO
     Route: 048
     Dates: start: 20101209, end: 20101225
  4. PARULEON (TRIAZOLAM) [Suspect]
     Indication: BIPOLAR I DISORDER
     Dosage: 0.25 MG; ; PO
     Route: 048
     Dates: start: 20101209, end: 20101224
  5. ZYPREXA [Suspect]
     Indication: BIPOLAR I DISORDER
     Dosage: 1.25 MG;   ; PO
     Route: 048
     Dates: start: 20070908
  6. SULPIRIDE (SULPIRIDE) [Suspect]
     Indication: BIPOLAR I DISORDER
     Dosage: 50 MG; ;PO
     Route: 048
     Dates: start: 20101125, end: 20101224
  7. LITIOMAL [Concomitant]
  8. WYPAX [Concomitant]
  9. BENZALIN [Concomitant]
  10. ZOPICLONE [Concomitant]
  11. SEROQUEL [Suspect]
     Indication: BIPOLAR I DISORDER
     Dosage: 50 MG; ;PO
     Route: 048
     Dates: start: 20101209, end: 20101224
  12. BI SIFROL (PRAMIPEXOLE HYDROCHLORIDE HYDRATE) [Concomitant]

REACTIONS (2)
  - FAECAL INCONTINENCE [None]
  - CONSTIPATION [None]
